FAERS Safety Report 9475312 (Version 4)
Quarter: 2014Q2

REPORT INFORMATION
  Report Type: Report from Study
  Country: US (occurrence: US)
  Receive Date: 20130826
  Receipt Date: 20140422
  Transmission Date: 20141212
  Serious: Yes (Hospitalization)
  Sender: FDA-Public Use
  Company Number: US-BIOGENIDEC-2013BI076154

PATIENT
  Age: 55 Year
  Sex: Male

DRUGS (6)
  1. TYSABRI [Suspect]
     Indication: MULTIPLE SCLEROSIS
     Route: 042
     Dates: start: 20081230, end: 20130514
  2. LAMICTAL [Concomitant]
  3. KLONOPIN [Concomitant]
  4. CYMBALTA [Concomitant]
  5. RITALIN [Concomitant]
  6. RITALIN [Concomitant]

REACTIONS (1)
  - Suicidal ideation [Recovered/Resolved]
